FAERS Safety Report 7621365-3 (Version None)
Quarter: 2011Q3

REPORT INFORMATION
  Report Type: 
  Country: None (occurrence: None)
  Receive Date: 20110719
  Receipt Date: 20110714
  Transmission Date: 20111222
  Serious: Yes (Death)
  Sender: FDA-Public Use
  Company Number: US-CELGENEUS-163-21880-11071739

PATIENT
  Age: 61 Year
  Sex: Female

DRUGS (8)
  1. NORCO [Concomitant]
     Route: 065
  2. ZOCOR [Concomitant]
     Route: 065
  3. REVLIMID [Suspect]
     Indication: MULTIPLE MYELOMA
     Dosage: 10 MILLIGRAM
     Route: 048
     Dates: start: 20100101, end: 20110301
  4. FENTANYL-100 [Concomitant]
     Route: 065
  5. ALPRAZOLAM [Concomitant]
     Route: 065
  6. AMITRIPTYLINE HCL [Concomitant]
     Route: 065
  7. DIFLUCAN [Concomitant]
     Route: 065
  8. DEXAMETHASONE [Concomitant]
     Route: 065

REACTIONS (1)
  - DEATH [None]
